FAERS Safety Report 11408842 (Version 1)
Quarter: 2015Q3

REPORT INFORMATION
  Report Type: Spontaneous
  Country: US (occurrence: US)
  Receive Date: 20150823
  Receipt Date: 20150823
  Transmission Date: 20151125
  Serious: Yes (Hospitalization, Other)
  Sender: FDA-Public Use
  Company Number: US-BRISTOL-MYERS SQUIBB COMPANY-BMS-2015-055746

PATIENT
  Sex: Female
  Weight: 108.84 kg

DRUGS (1)
  1. ELIQUIS [Suspect]
     Active Substance: APIXABAN
     Indication: THROMBOSIS PROPHYLAXIS
     Dosage: 10 MG, BID
     Route: 065
     Dates: start: 20150814

REACTIONS (4)
  - Ligament rupture [Unknown]
  - Meningitis [Unknown]
  - Thrombosis [Unknown]
  - Hyperhidrosis [Unknown]
